FAERS Safety Report 10424352 (Version 2)
Quarter: 2014Q3

REPORT INFORMATION
  Report Type: Spontaneous
  Country: DK (occurrence: DK)
  Receive Date: 20140902
  Receipt Date: 20140909
  Transmission Date: 20150326
  Serious: Yes (Life-Threatening)
  Sender: FDA-Public Use
  Company Number: DK-BRISTOL-MYERS SQUIBB COMPANY-21330865

PATIENT
  Age: 67 Year
  Sex: Male

DRUGS (9)
  1. DIURAL [Concomitant]
     Active Substance: FUROSEMIDE
  2. SPIRIVA [Concomitant]
     Active Substance: TIOTROPIUM BROMIDE MONOHYDRATE
  3. CAPTOPRIL. [Concomitant]
     Active Substance: CAPTOPRIL
  4. KALEORID [Concomitant]
     Active Substance: POTASSIUM CHLORIDE
  5. METFORMIN HCL [Concomitant]
     Active Substance: METFORMIN HYDROCHLORIDE
  6. DIGOXIN. [Concomitant]
     Active Substance: DIGOXIN
  7. BYETTA [Suspect]
     Active Substance: EXENATIDE
     Indication: TYPE 2 DIABETES MELLITUS
     Route: 058
     Dates: start: 20120821, end: 20140703
  8. METOPROLOL SUCCINATE. [Concomitant]
     Active Substance: METOPROLOL SUCCINATE
  9. SIMVASTATIN. [Concomitant]
     Active Substance: SIMVASTATIN

REACTIONS (1)
  - Pancreatic carcinoma metastatic [Not Recovered/Not Resolved]

NARRATIVE: CASE EVENT DATE: 20140616
